FAERS Safety Report 24910621 (Version 1)
Quarter: 2025Q1

REPORT INFORMATION
  Report Type: Spontaneous
  Country: US (occurrence: None)
  Receive Date: 20250130
  Receipt Date: 20250130
  Transmission Date: 20250409
  Serious: Yes (unspecified)
  Sender: FDA-CTU
  Company Number: None

PATIENT
  Age: 51 Year
  Sex: Female
  Weight: 72.4 kg

DRUGS (13)
  1. CEFTRIAXONE [Suspect]
     Active Substance: CEFTRIAXONE
     Indication: Shock haemorrhagic
     Dosage: FREQUENCY : DAILY;?
     Route: 040
     Dates: start: 20250117, end: 20250119
  2. Calcium gluconate 100 mg/mL 10% injection 2g [Concomitant]
     Dates: start: 20250116, end: 20250116
  3. Cefepime 2g in NaCl 0.9% 100 mL IVPB [Concomitant]
     Dates: start: 20250116, end: 20250117
  4. Clindamycin 600 mg in NaCl 0.9% 50 mL IVPB [Concomitant]
     Dates: start: 20250116, end: 20250116
  5. Famotidine injection 20 mg [Concomitant]
     Dates: start: 20250117, end: 20250120
  6. Fentanyl injection 25-50 mcg [Concomitant]
     Dates: start: 20250116, end: 20250117
  7. Insulin lispro injection 0-6 units [Concomitant]
     Dates: start: 20250117, end: 20250120
  8. iohexol 350 mg iodine/mL injection 120 mL [Concomitant]
     Dates: start: 20250116, end: 20250117
  9. lidocaine-epinephrine 1%-1:100,000 injection 10 mL [Concomitant]
     Dates: start: 20250116, end: 20250116
  10. Linezolid 600 mg in dextrose 5% 300 mL IVPB [Concomitant]
     Dates: start: 20250117, end: 20250118
  11. metronidazole in NaCl IVPB 500 mg [Concomitant]
     Dates: start: 20250116, end: 20250118
  12. tranexamic acid 1000 mg in NaCl 100 mL IVPB [Concomitant]
     Dates: start: 20250116, end: 20250116
  13. norepinephrine infusion 16 mg/250 mL NS (64 mcg/mL) premix [Concomitant]
     Dates: start: 20250117, end: 20250118

REACTIONS (5)
  - Flushing [None]
  - Feeling hot [None]
  - Bradycardia [None]
  - Infusion related reaction [None]
  - Nausea [None]

NARRATIVE: CASE EVENT DATE: 20250117
